FAERS Safety Report 4838098-9 (Version None)
Quarter: 2005Q4

REPORT INFORMATION
  Report Type: 
  Country: None (occurrence: None)
  Receive Date: 20051123
  Receipt Date: 20051123
  Transmission Date: 20060501
  Serious: Yes (Hospitalization)
  Sender: FDA-Public Use
  Company Number: None

PATIENT
  Sex: Female

DRUGS (1)
  1. FERRLECIT [Suspect]
     Indication: IRON DEFICIENCY ANAEMIA
     Dosage: 250MG IV OVER 70 MIN
     Route: 042
     Dates: start: 20050711

REACTIONS (8)
  - BRADYCARDIA [None]
  - EYE ROLLING [None]
  - HYPOTENSION [None]
  - INAPPROPRIATE SCHEDULE OF DRUG ADMINISTRATION [None]
  - INFUSION RELATED REACTION [None]
  - LOSS OF CONSCIOUSNESS [None]
  - MUSCLE CONTRACTIONS INVOLUNTARY [None]
  - URINARY INCONTINENCE [None]
